FAERS Safety Report 9051191 (Version 2)
Quarter: 2013Q1

REPORT INFORMATION
  Report Type: Spontaneous
  Country: DE (occurrence: DE)
  Receive Date: 20130206
  Receipt Date: 20130222
  Transmission Date: 20140127
  Serious: Yes (Other)
  Sender: FDA-Public Use
  Company Number: DE-BRISTOL-MYERS SQUIBB COMPANY-17323437

PATIENT
  Age: 73 Year
  Sex: Female

DRUGS (8)
  1. ABATACEPT SUBQ INJECTION 125MG/ML [Suspect]
     Indication: RHEUMATOID ARTHRITIS
     Dosage: NO OF INF:2
     Route: 058
     Dates: start: 20130109
  2. QUENSYL [Suspect]
     Indication: RHEUMATOID ARTHRITIS
     Dosage: 1DF=1 TABLET
     Route: 048
     Dates: start: 201210
  3. ETANERCEPT [Suspect]
  4. TILIDINE HCL + NALOXONE HCL [Concomitant]
     Indication: RHEUMATOID ARTHRITIS
     Route: 048
     Dates: start: 201210
  5. PREDNISOLONE [Concomitant]
     Indication: RHEUMATOID ARTHRITIS
     Route: 048
     Dates: start: 2011
  6. DICLAC [Concomitant]
     Indication: RHEUMATOID ARTHRITIS
     Dosage: 1 DF:25-50MG REQUIRED
     Dates: start: 2006
  7. DELIX [Concomitant]
     Indication: HYPERTENSION
     Dates: start: 2010
  8. TOREM [Concomitant]
     Indication: HYPERTENSION
     Dates: start: 2010

REACTIONS (3)
  - Gamma-glutamyltransferase increased [Recovering/Resolving]
  - Blood alkaline phosphatase increased [Not Recovered/Not Resolved]
  - Alanine aminotransferase increased [Not Recovered/Not Resolved]
